FAERS Safety Report 5720021-6 (Version None)
Quarter: 2008Q2

REPORT INFORMATION
  Report Type: 
  Country: None (occurrence: None)
  Receive Date: 20080428
  Receipt Date: 20080423
  Transmission Date: 20081010
  Serious: Yes (Other)
  Sender: FDA-Public Use
  Company Number: US-ASTRAZENECA-2008UW08194

PATIENT
  Age: 57 Year
  Sex: Female
  Weight: 77.3 kg

DRUGS (2)
  1. PRILOSEC OTC [Suspect]
     Indication: DYSPEPSIA
     Route: 048
     Dates: start: 20080411, end: 20080418
  2. PRILOSEC OTC [Suspect]
     Indication: ABDOMINAL PAIN UPPER
     Route: 048
     Dates: start: 20080411, end: 20080418

REACTIONS (3)
  - DRY EYE [None]
  - EYE DISORDER [None]
  - YELLOW SKIN [None]
